FAERS Safety Report 9155726 (Version 3)
Quarter: 2013Q3

REPORT INFORMATION
  Report Type: Spontaneous
  Country: DE (occurrence: DE)
  Receive Date: 20130311
  Receipt Date: 20130717
  Transmission Date: 20140515
  Serious: Yes (Hospitalization)
  Sender: FDA-Public Use
  Company Number: DE-VERTEX PHARMACEUTICALS INC.-2013-003330

PATIENT
  Age: 54 Year
  Sex: Female

DRUGS (15)
  1. INCIVO [Suspect]
     Indication: HEPATITIS C
     Dosage: DAILY
     Route: 048
     Dates: start: 20121121, end: 20130213
  2. RIBAVIRIN [Suspect]
     Indication: HEPATITIS C
     Dosage: DOSAGE FORM: UNSPECIFIED, DAILY
     Route: 048
     Dates: start: 20121121
  3. PEGINTERFERON ALFA-2A [Suspect]
     Indication: HEPATITIS C
     Dosage: DOSAGE FORM: UNSPECIFIED
     Route: 058
     Dates: start: 20121121
  4. RAMIPRIL [Concomitant]
     Indication: HYPERTENSION
     Dosage: DOSAGE FORM: UNSPECIFIED
     Route: 048
  5. LONOLOX [Concomitant]
     Indication: HYPERTENSION
     Dosage: DOSAGE FORM: UNSPECIFIED
     Route: 048
  6. BISOPROLOL [Concomitant]
     Indication: HYPERTENSION
     Dosage: DOSAGE FORM: UNSPECIFIED
     Route: 048
  7. CLONIDINE [Concomitant]
     Indication: HYPERTENSION
     Dosage: DOSAGE FORM: UNSPECIFIED
     Route: 048
  8. CANDESARTAN [Concomitant]
     Indication: HYPERTENSION
     Dosage: DOSAGE FORM: UNSPECIFIED
     Route: 048
  9. CYNT [Concomitant]
     Indication: PRODUCT USED FOR UNKNOWN INDICATION
     Dosage: DOSAGE FORM: UNSPECIFIED, 0.4 UNIT NOT PROVIDED
     Route: 065
  10. TORASEMIDE [Concomitant]
     Indication: PRODUCT USED FOR UNKNOWN INDICATION
     Dosage: DOSAGE FORM: UNSPECIFIED, 2-0-0
     Route: 065
  11. BICANORM [Concomitant]
     Indication: PRODUCT USED FOR UNKNOWN INDICATION
     Dosage: DOSAGE FORM: UNSPECIFIED, 2-2-2
     Route: 065
  12. ROCALTROL [Concomitant]
     Indication: PRODUCT USED FOR UNKNOWN INDICATION
     Dosage: DOSAGE FORM: UNSPECIFIED
     Route: 065
  13. L-THYROXINE [Concomitant]
     Indication: PRODUCT USED FOR UNKNOWN INDICATION
     Dosage: DOSAGE FORM: UNSPECIFIED
     Route: 065
  14. ARANESP [Concomitant]
     Indication: PRODUCT USED FOR UNKNOWN INDICATION
     Dosage: DOSAGE FORM: UNSPECIFIED
     Route: 065
  15. CALCIUM [Concomitant]
     Indication: PRODUCT USED FOR UNKNOWN INDICATION
     Route: 065

REACTIONS (4)
  - Dyspnoea [Recovered/Resolved]
  - Cardiomegaly [Unknown]
  - Cardiac flutter [Unknown]
  - Fluid retention [Unknown]
